FAERS Safety Report 13792256 (Version 1)
Quarter: 2017Q3

REPORT INFORMATION
  Report Type: Spontaneous
  Country: US (occurrence: US)
  Receive Date: 20170725
  Receipt Date: 20170725
  Transmission Date: 20171127
  Serious: Yes (Hospitalization)
  Sender: FDA-Public Use
  Company Number: US-VALIDUS PHARMACEUTICALS LLC-US-2017VAL001091

PATIENT

DRUGS (4)
  1. GABAPENTIN. [Concomitant]
     Active Substance: GABAPENTIN
     Dosage: 300 MG, TID, AT NIGHT
  2. METOPROLOL TARTRATE. [Suspect]
     Active Substance: METOPROLOL TARTRATE
     Indication: HYPERTENSION
     Dosage: 20 MG, UNK
  3. ELIQUIS [Concomitant]
     Active Substance: APIXABAN
     Indication: PRODUCT USED FOR UNKNOWN INDICATION
     Dosage: UNK
  4. GABAPENTIN. [Concomitant]
     Active Substance: GABAPENTIN
     Indication: EXOSTOSIS
     Dosage: 300 MG, THREE AT NIGHT, TWO IN THE MORNING

REACTIONS (5)
  - Throat irritation [Unknown]
  - Palpitations [Unknown]
  - Drug ineffective [Unknown]
  - Atrial fibrillation [Unknown]
  - Cardiac failure congestive [Unknown]
